FAERS Safety Report 26213677 (Version 1)
Quarter: 2025Q4

REPORT INFORMATION
  Report Type: Spontaneous
  Country: US (occurrence: US)
  Receive Date: 20251230
  Receipt Date: 20251230
  Transmission Date: 20260119
  Serious: Yes (Hospitalization)
  Sender: AMGEN
  Company Number: US-AMGEN-USASP2025254437

PATIENT
  Age: 71 Year
  Sex: Male

DRUGS (7)
  1. RITUXIMAB [Suspect]
     Active Substance: RITUXIMAB
     Indication: Haemorrhage
     Dosage: UNK
     Route: 065
  2. RITUXIMAB [Suspect]
     Active Substance: RITUXIMAB
     Indication: Factor XIII deficiency
  3. Immunoglobulin [Concomitant]
     Indication: Haemorrhage
     Route: 040
  4. BORTEZOMIB;DEXAMETHASONE [Concomitant]
     Indication: Haemorrhage
  5. MYCOPHENOLATE MOFETIL [Concomitant]
     Active Substance: MYCOPHENOLATE MOFETIL
     Indication: Haemorrhage
  6. CYCLOPHOSPHAMIDE [Concomitant]
     Active Substance: CYCLOPHOSPHAMIDE
     Indication: Haemorrhage
  7. DARATUMUMAB [Concomitant]
     Active Substance: DARATUMUMAB
     Indication: Haemorrhage

REACTIONS (4)
  - Myelodysplastic syndrome [Unknown]
  - Haemorrhage [Unknown]
  - Drug ineffective for unapproved indication [Unknown]
  - Off label use [Unknown]
